FAERS Safety Report 6501752-7 (Version None)
Quarter: 2009Q4

REPORT INFORMATION
  Report Type: 
  Country: None (occurrence: None)
  Receive Date: 20091216
  Receipt Date: 20091207
  Transmission Date: 20100525
  Serious: Yes (Other)
  Sender: FDA-Public Use
  Company Number: NO-PFIZER INC-2009229235

PATIENT
  Age: 56 Year
  Sex: Female

DRUGS (5)
  1. LYRICA [Suspect]
     Indication: NEURALGIA
     Dosage: 100 MG, 3X/DAY
     Route: 048
     Dates: start: 20080715
  2. LYRICA [Suspect]
     Dosage: 150 MG, 2X/DAY
     Route: 048
     Dates: end: 20090101
  3. OXYCONTIN [Concomitant]
     Dosage: UNK
  4. ACETAMINOPHEN W/ PROPOXYPHENE HCL [Concomitant]
     Dosage: UNK
  5. IBUX [Concomitant]
     Dosage: UNK

REACTIONS (9)
  - CHEST PAIN [None]
  - DIZZINESS [None]
  - DYSARTHRIA [None]
  - EYE PAIN [None]
  - NASAL CAVITY PACKING [None]
  - TACHYCARDIA [None]
  - URINARY RETENTION [None]
  - VISUAL IMPAIRMENT [None]
  - VITREOUS DETACHMENT [None]
